FAERS Safety Report 7517037-6 (Version None)
Quarter: 2011Q2

REPORT INFORMATION
  Report Type: 
  Country: None (occurrence: None)
  Receive Date: 20110601
  Receipt Date: 20110518
  Transmission Date: 20111010
  Serious: Yes (Hospitalization)
  Sender: FDA-Public Use
  Company Number: JP-JNJFOC-20110509722

PATIENT
  Sex: Female
  Weight: 42 kg

DRUGS (13)
  1. REMICADE [Suspect]
     Indication: PSORIATIC ARTHROPATHY
     Route: 042
     Dates: start: 20100903
  2. REMICADE [Suspect]
     Route: 042
     Dates: start: 20100821
  3. OMEPRAZOLE [Concomitant]
     Indication: GASTROINTESTINAL DISORDER THERAPY
     Route: 048
     Dates: start: 20090223
  4. REMICADE [Suspect]
     Route: 042
     Dates: start: 20101001
  5. REMICADE [Suspect]
     Route: 042
     Dates: start: 20100821
  6. PATANOL [Concomitant]
     Indication: CONJUNCTIVITIS ALLERGIC
     Route: 031
  7. FLUMETHOLON [Concomitant]
     Indication: ULCERATIVE KERATITIS
     Route: 031
  8. REMICADE [Suspect]
     Indication: BEHCET'S SYNDROME
     Route: 042
     Dates: start: 20100903
  9. REMICADE [Suspect]
     Route: 042
     Dates: start: 20101001
  10. RHEUMATREX [Concomitant]
     Indication: PSORIASIS
     Route: 048
     Dates: start: 20100405
  11. BETAMETHASONE [Concomitant]
     Indication: BEHCET'S SYNDROME
     Route: 048
     Dates: start: 20090223
  12. NEORAL [Concomitant]
     Indication: PSORIASIS
     Route: 048
     Dates: start: 20100531
  13. FOLIC ACID [Concomitant]
     Indication: FOLATE DEFICIENCY
     Route: 048
     Dates: start: 20100405

REACTIONS (1)
  - PNEUMONIA CRYPTOCOCCAL [None]
